FAERS Safety Report 25351437 (Version 1)
Quarter: 2025Q2

REPORT INFORMATION
  Report Type: Spontaneous
  Country: JP (occurrence: JP)
  Receive Date: 20250523
  Receipt Date: 20250523
  Transmission Date: 20250716
  Serious: Yes (Hospitalization, Other)
  Sender: AMGEN
  Company Number: JP-AMGEN-JPNSP2025094966

PATIENT
  Age: 72 Year
  Sex: Female

DRUGS (12)
  1. EVENITY [Suspect]
     Active Substance: ROMOSOZUMAB-AQQG
     Indication: Osteoporosis
     Route: 058
     Dates: start: 202102, end: 202201
  2. EVENITY [Suspect]
     Active Substance: ROMOSOZUMAB-AQQG
     Dosage: 210 MILLIGRAM, QMO
     Route: 058
     Dates: start: 202409, end: 202503
  3. MIRABEGRON [Suspect]
     Active Substance: MIRABEGRON
     Indication: Hypertonic bladder
     Route: 065
  4. MINODRONIC ACID [Suspect]
     Active Substance: MINODRONIC ACID
     Indication: Osteoporosis
     Route: 065
     Dates: start: 202202
  5. EXFORGE [Concomitant]
     Active Substance: AMLODIPINE BESYLATE\VALSARTAN
  6. TRICOR [Concomitant]
     Active Substance: FENOFIBRATE
  7. METGLUCO [Concomitant]
     Active Substance: METFORMIN HYDROCHLORIDE
  8. DAPAGLIFLOZIN [Concomitant]
     Active Substance: DAPAGLIFLOZIN
  9. NESINA [Concomitant]
     Active Substance: ALOGLIPTIN BENZOATE
  10. LOXOPROFEN [Concomitant]
     Active Substance: LOXOPROFEN
  11. OLOPATADINE [Concomitant]
     Active Substance: OLOPATADINE
  12. RYBELSUS [Concomitant]
     Active Substance: SEMAGLUTIDE

REACTIONS (5)
  - Acute myocardial infarction [Recovered/Resolved]
  - Angina unstable [Unknown]
  - Dental care [Unknown]
  - Fracture [Unknown]
  - Bone density decreased [Unknown]

NARRATIVE: CASE EVENT DATE: 20220301
